FAERS Safety Report 6863096-3 (Version None)
Quarter: 2010Q2

REPORT INFORMATION
  Report Type: 
  Country: None (occurrence: None)
  Receive Date: 20100528
  Receipt Date: 20100224
  Transmission Date: 20101027
  Serious: No
  Sender: FDA-Public Use
  Company Number: 008369

PATIENT
  Age: 14 Year
  Sex: Male

DRUGS (2)
  1. LACOSAMIDE [Suspect]
     Dosage: (), (200 MG BID)
  2. TRILEPTAL [Concomitant]

REACTIONS (4)
  - ABDOMINAL PAIN UPPER [None]
  - DIZZINESS [None]
  - FATIGUE [None]
  - FEELING HOT [None]
